FAERS Safety Report 8578253 (Version 2)
Quarter: 2014Q1

REPORT INFORMATION
  Report Type: Spontaneous
  Country: US (occurrence: None)
  Receive Date: 20120323
  Receipt Date: 20130305
  Transmission Date: 20141002
  Serious: Yes (Other)
  Sender: FDA-Public Use
  Company Number: 163-21880-11063673

PATIENT
  Age: 67 Year
  Sex: Female

DRUGS (8)
  1. REVLIMID [Suspect]
     Indication: PLASMA CELL MYELOMA
     Dosage: QD ONDAYS 1-21, PO
     Route: 048
     Dates: start: 20110613, end: 20110706
  2. PERCOCET [Concomitant]
  3. ZOMETA (ZOLEDRONIC ACID) [Concomitant]
  4. OXYCONTIN [Concomitant]
  5. ATIVAN [Concomitant]
  6. ASA (ACETYLSALICYLIC ACID) [Concomitant]
  7. MVI [Concomitant]
  8. NEURONTIN (GABAPENTIN) [Concomitant]

REACTIONS (5)
  - Pharyngeal oedema [None]
  - Skin disorder [None]
  - Pharyngeal oedema [None]
  - Pruritus [None]
  - Skin disorder [None]
